FAERS Safety Report 19031829 (Version 3)
Quarter: 2021Q2

REPORT INFORMATION
  Report Type: Spontaneous
  Country: JP (occurrence: JP)
  Receive Date: 20210319
  Receipt Date: 20210607
  Transmission Date: 20210717
  Serious: Yes (Other)
  Sender: FDA-Public Use
  Company Number: JP-PFIZER INC-2021272743

PATIENT
  Age: 64 Year
  Sex: Female
  Weight: 55 kg

DRUGS (7)
  1. CELECOX [Suspect]
     Active Substance: CELECOXIB
     Indication: ARTHRALGIA
  2. CELECOX [Suspect]
     Active Substance: CELECOXIB
     Indication: BACK PAIN
     Dosage: 100 MG, 2X/DAY
     Route: 048
     Dates: start: 20130709, end: 20200624
  3. CELECOXIB 100MG PFIZER [Suspect]
     Active Substance: CELECOXIB
     Indication: BACK PAIN
     Dosage: 100 MG, 2X/DAY
     Route: 048
     Dates: start: 20200625, end: 20210227
  4. ADETPHOS [Concomitant]
     Active Substance: ADENOSINE TRIPHOSPHATE
     Dosage: UNK
     Route: 048
  5. STOMIN A [Concomitant]
     Active Substance: NIACINAMIDE\PAPAVERINE HYDROCHLORIDE
     Dosage: UNK
     Route: 048
  6. CELECOXIB 100MG PFIZER [Suspect]
     Active Substance: CELECOXIB
     Indication: ARTHRALGIA
  7. BETAHISTINE MESILATE [Concomitant]
     Active Substance: BETAHISTINE MESILATE
     Dosage: UNK
     Route: 048

REACTIONS (1)
  - Gastrointestinal candidiasis [Recovered/Resolved]

NARRATIVE: CASE EVENT DATE: 20210227
